FAERS Safety Report 5609629-6 (Version None)
Quarter: 2008Q1

REPORT INFORMATION
  Report Type: 
  Country: None (occurrence: None)
  Receive Date: 20080131
  Receipt Date: 20080123
  Transmission Date: 20080703
  Serious: Yes (Other)
  Sender: FDA-Public Use
  Company Number: A0706168A

PATIENT
  Sex: Female

DRUGS (2)
  1. FLOVENT [Suspect]
     Indication: DRUG USE FOR UNKNOWN INDICATION
     Route: 055
  2. UNKNOWN [Concomitant]

REACTIONS (2)
  - DEVICE INEFFECTIVE [None]
  - PHARMACEUTICAL PRODUCT COMPLAINT [None]
